FAERS Safety Report 7586505-3 (Version None)
Quarter: 2011Q3

REPORT INFORMATION
  Report Type: 
  Country: None (occurrence: None)
  Receive Date: 20110701
  Receipt Date: 20110620
  Transmission Date: 20111222
  Serious: Yes (Life-Threatening, Hospitalization)
  Sender: FDA-Public Use
  Company Number: US-ROCHE-783498

PATIENT
  Age: 61 Year
  Sex: Female
  Weight: 120.3 kg

DRUGS (2)
  1. BEVACIZUMAB [Suspect]
     Indication: GLIOBLASTOMA MULTIFORME
     Dosage: DATE OF LAST DOSE ADMINISTERED: 18 MAY 2011.
     Route: 042
     Dates: start: 20110425, end: 20110602
  2. TEMOZOLOMIDE [Suspect]
     Indication: GLIOBLASTOMA MULTIFORME
     Dosage: LAST DOSE ADMINISTERED: 02 JUNE 2011.
     Route: 048
     Dates: start: 20110425, end: 20110602

REACTIONS (4)
  - FEBRILE NEUTROPENIA [None]
  - ATRIAL FIBRILLATION [None]
  - EMBOLISM [None]
  - SEPSIS [None]
